FAERS Safety Report 12270482 (Version 2)
Quarter: 2017Q4

REPORT INFORMATION
  Report Type: Spontaneous
  Country: PH (occurrence: PH)
  Receive Date: 20160415
  Receipt Date: 20171002
  Transmission Date: 20180320
  Serious: Yes (Hospitalization, Other)
  Sender: FDA-Public Use
  Company Number: PH-009507513-1604PHL004528

PATIENT
  Age: 68 Year
  Sex: Female

DRUGS (2)
  1. JANUMET [Suspect]
     Active Substance: METFORMIN HYDROCHLORIDE\SITAGLIPTIN PHOSPHATE
     Indication: DIABETES MELLITUS
     Dosage: 1 TABLET (50/500MG) ONCE A DAY
     Route: 048
     Dates: end: 201610
  2. JANUMET [Suspect]
     Active Substance: METFORMIN HYDROCHLORIDE\SITAGLIPTIN PHOSPHATE
     Dosage: 1 TABLET (50/500MG) TWICE A DAY
     Route: 048
     Dates: start: 201610

REACTIONS (4)
  - Cholelithiasis [Recovering/Resolving]
  - Blood glucose increased [Not Recovered/Not Resolved]
  - Inappropriate schedule of drug administration [Unknown]
  - Neoplasm [Recovering/Resolving]

NARRATIVE: CASE EVENT DATE: 20160330
